FAERS Safety Report 8163585-8 (Version None)
Quarter: 2012Q1

REPORT INFORMATION
  Report Type: 
  Country: None (occurrence: None)
  Receive Date: 20120224
  Receipt Date: 20120213
  Transmission Date: 20120608
  Serious: No
  Sender: FDA-Public Use
  Company Number: US-B.I. PHARMACEUTICALS,INC./RIDGEFIELD-2011-BP-24394BP

PATIENT
  Sex: Female

DRUGS (5)
  1. PREMARIN [Concomitant]
     Indication: HORMONE REPLACEMENT THERAPY
     Dosage: 0.025 MG
     Route: 048
  2. PROZAC [Concomitant]
     Indication: DEPRESSION
     Dosage: 10 MG
     Route: 048
  3. COMBIVENT [Suspect]
     Dosage: 8 PUF
     Route: 055
     Dates: start: 20120210
  4. COMBIVENT [Suspect]
     Indication: ASTHMA
     Dosage: 8 PUF
     Dates: start: 19960101, end: 20111001
  5. TYLENOL W/ CODEINE NO. 4 [Concomitant]
     Indication: PAIN
     Route: 048

REACTIONS (3)
  - DIZZINESS [None]
  - HEART RATE INCREASED [None]
  - DRUG INEFFECTIVE [None]
